FAERS Safety Report 15751633 (Version 1)
Quarter: 2018Q4

REPORT INFORMATION
  Report Type: Spontaneous
  Country: GB (occurrence: GB)
  Receive Date: 20181221
  Receipt Date: 20181221
  Transmission Date: 20190205
  Serious: Yes (Death, Hospitalization)
  Sender: FDA-Public Use
  Company Number: GB-LINDE-GB-E2B_00000031

PATIENT
  Age: 79 Year
  Sex: Male

DRUGS (7)
  1. SALBUTAMOL [Concomitant]
     Active Substance: ALBUTEROL
     Indication: DYSPNOEA
  2. NITROUS OXIDE (GENERIC) [Suspect]
     Active Substance: NITROUS OXIDE
     Indication: ANAESTHESIA
     Route: 055
     Dates: start: 19920618, end: 19920618
  3. OXYGEN (GENERIC) [Suspect]
     Active Substance: OXYGEN
     Indication: ANAESTHESIA
     Route: 065
     Dates: start: 19920618, end: 19920618
  4. ISOFLURANE. [Suspect]
     Active Substance: ISOFLURANE
     Indication: ANAESTHESIA
     Dates: start: 19920618, end: 19920618
  5. FENTANYL. [Suspect]
     Active Substance: FENTANYL
     Indication: PRODUCT USED FOR UNKNOWN INDICATION
     Dates: start: 19920618, end: 19920618
  6. BURINEX [Concomitant]
     Active Substance: BUMETANIDE
     Indication: PRODUCT USED FOR UNKNOWN INDICATION
  7. PROPOFOL. [Suspect]
     Active Substance: PROPOFOL
     Indication: PRODUCT USED FOR UNKNOWN INDICATION
     Dates: start: 19920618, end: 19920618

REACTIONS (1)
  - Hepatic necrosis [Fatal]
